FAERS Safety Report 14372037 (Version 4)
Quarter: 2019Q1

REPORT INFORMATION
  Report Type: Spontaneous
  Country: NO (occurrence: NO)
  Receive Date: 20180110
  Receipt Date: 20190219
  Transmission Date: 20190417
  Serious: Yes (Other)
  Sender: FDA-Public Use
  Company Number: NO-PFIZER INC-2018008381

PATIENT
  Age: 78 Year
  Sex: Female

DRUGS (14)
  1. NOBLIGAN [Suspect]
     Active Substance: TRAMADOL HYDROCHLORIDE
     Indication: BACK PAIN
     Dosage: 50 MG, AS NEEDED (MAX 3 TIMES DAILY)
     Route: 048
     Dates: start: 20170629
  2. CANDESARTAN KRKA [Suspect]
     Active Substance: CANDESARTAN
     Indication: HYPERTENSION
     Dosage: 8 MG, 1X/DAY
     Route: 048
     Dates: end: 20170713
  3. PERSANTIN RETARD [Concomitant]
     Active Substance: DIPYRIDAMOLE
     Dosage: 200 MG, 1X/DAY
  4. NEURONTIN [Suspect]
     Active Substance: GABAPENTIN
     Indication: BACK PAIN
     Dosage: 1200 MG ( 300 + 300 + 600 MG), 1X/DAY
     Route: 048
     Dates: start: 20170629
  5. TRAMADOL. [Suspect]
     Active Substance: TRAMADOL
     Dosage: UNK
  6. CALCIGRAN FORTE [Concomitant]
     Active Substance: CALCIUM CARBONATE\CHOLECALCIFEROL
     Dosage: 1 DF, DAILY [1000 MG CALCIUM CARBONATE / 800IE COLECALCIFEROL]
  7. SERETIDE [Concomitant]
     Active Substance: FLUTICASONE PROPIONATE\SALMETEROL XINAFOATE
     Dosage: 1 DF, 1X/DAY [FLUTICASONE PROPIONATE 50 UG/SALMETEROL XINAFOATE 500 UG]
  8. IMOVANE [Concomitant]
     Active Substance: ZOPICLONE
     Indication: INITIAL INSOMNIA
     Dosage: 3.75 MG, 1X/DAY
     Route: 048
  9. VALTREX [Suspect]
     Active Substance: VALACYCLOVIR HYDROCHLORIDE
     Indication: HERPES ZOSTER
     Dosage: 1 G, DAILY
     Route: 048
     Dates: start: 20170629, end: 201707
  10. SOBRIL [Concomitant]
     Active Substance: OXAZEPAM
     Dosage: UNK
     Dates: end: 20170714
  11. LIPITOR [Concomitant]
     Active Substance: ATORVASTATIN CALCIUM
     Indication: BLOOD CHOLESTEROL INCREASED
     Dosage: 10 MG, 1X/DAY
     Route: 048
  12. BACTRIM [Suspect]
     Active Substance: SULFAMETHOXAZOLE\TRIMETHOPRIM
     Indication: URINARY TRACT INFECTION
     Dosage: 1 DF, 1X/DAY
     Route: 048
     Dates: start: 20170629, end: 201707
  13. AMLODIPIN ACTAVIS [AMLODIPINE BESILATE] [Concomitant]
     Indication: HYPERTENSION
     Dosage: 10 MG, 1X/DAY
     Route: 048
     Dates: end: 201707
  14. ALBYL-E [Concomitant]
     Active Substance: ASPIRIN\MAGNESIUM OXIDE
     Dosage: 75 MG, 1X/DAY

REACTIONS (6)
  - Dysarthria [Recovering/Resolving]
  - Facial paresis [Recovering/Resolving]
  - Confusional state [Recovered/Resolved with Sequelae]
  - Myoclonus [Recovering/Resolving]
  - Acute kidney injury [Recovering/Resolving]
  - Ataxia [Recovering/Resolving]

NARRATIVE: CASE EVENT DATE: 20170713
